FAERS Safety Report 24019794 (Version 1)
Quarter: 2024Q2

REPORT INFORMATION
  Report Type: Spontaneous
  Country: US (occurrence: None)
  Receive Date: 20240627
  Receipt Date: 20240627
  Transmission Date: 20240716
  Serious: Yes (Hospitalization)
  Sender: FDA-Public Use
  Company Number: None

PATIENT
  Age: 77 Year
  Sex: Male
  Weight: 88.8 kg

DRUGS (3)
  1. FLUOROURACIL [Suspect]
     Active Substance: FLUOROURACIL
     Dates: end: 20240621
  2. LEUCOVORIN CALCIUM [Suspect]
     Active Substance: LEUCOVORIN CALCIUM
     Dates: end: 20240619
  3. OXALIPLATIN [Suspect]
     Active Substance: OXALIPLATIN
     Dates: end: 20240619

REACTIONS (3)
  - Atrial fibrillation [None]
  - Brain natriuretic peptide increased [None]
  - Fatigue [None]

NARRATIVE: CASE EVENT DATE: 20240621
